FAERS Safety Report 23873137 (Version 1)
Quarter: 2024Q2

REPORT INFORMATION
  Report Type: Spontaneous
  Country: DE (occurrence: CI)
  Receive Date: 20240520
  Receipt Date: 20240520
  Transmission Date: 20240715
  Serious: Yes (Other)
  Sender: FDA-Public Use
  Company Number: None

PATIENT
  Sex: Male

DRUGS (6)
  1. SERTRALINE [Suspect]
     Active Substance: SERTRALINE HYDROCHLORIDE
     Indication: Post-traumatic stress disorder
     Dosage: STRENGTH: 50 MG
     Dates: start: 202102, end: 20240126
  2. IBUPROFEN [Concomitant]
     Active Substance: IBUPROFEN
     Indication: Sciatica
     Dosage: STRENGTH: 600MG
  3. Iberogast ADVANCE [Concomitant]
     Indication: Abdominal discomfort
     Dosage: 20-20-20, POSSIBLY REDUCING THE DOSE IF NECESSARY
  4. Spascupreel [Concomitant]
     Indication: Abdominal pain
  5. RescueFlow [Concomitant]
     Indication: Restlessness
     Dosage: 5 DROPS AS REQUIRED
  6. NEURAPAS BALANCE [Concomitant]
     Indication: Depressed mood
     Dosage: 2-2-2

REACTIONS (8)
  - Musculoskeletal stiffness [Unknown]
  - Dizziness [Unknown]
  - Gait disturbance [Unknown]
  - Diarrhoea [Unknown]
  - Ocular discomfort [Unknown]
  - Drug withdrawal syndrome [Unknown]
  - Arrhythmia [Unknown]
  - Insomnia [Unknown]
